FAERS Safety Report 6786164-3 (Version None)
Quarter: 2010Q2

REPORT INFORMATION
  Report Type: 
  Country: None (occurrence: None)
  Receive Date: 20100623
  Receipt Date: 20100615
  Transmission Date: 20101027
  Serious: Yes (Other)
  Sender: FDA-Public Use
  Company Number: US-AMGEN-QUU418382

PATIENT
  Sex: Male

DRUGS (3)
  1. NPLATE [Suspect]
     Indication: IDIOPATHIC THROMBOCYTOPENIC PURPURA
     Dates: start: 20090120
  2. CORTICOSTEROIDS [Concomitant]
     Dates: start: 20081224
  3. RITUXIMAB [Concomitant]
     Dates: start: 20090105

REACTIONS (1)
  - APLASTIC ANAEMIA [None]
